FAERS Safety Report 16058993 (Version 1)
Quarter: 2019Q1

REPORT INFORMATION
  Report Type: Report from Study
  Country: ES (occurrence: ES)
  Receive Date: 20190311
  Receipt Date: 20190311
  Transmission Date: 20190418
  Serious: Yes (Hospitalization)
  Sender: FDA-Public Use
  Company Number: ES-PFIZER INC-2019102390

PATIENT
  Age: 4 Year
  Sex: Female

DRUGS (4)
  1. IFOSFAMIDE. [Suspect]
     Active Substance: IFOSFAMIDE
     Indication: ACUTE LYMPHOCYTIC LEUKAEMIA
     Dosage: 526.6 MG, 2X/DAY (EVERY 12H)
     Route: 042
     Dates: start: 20171206, end: 20171208
  2. VINDESINE SULFATE [Suspect]
     Active Substance: VINDESINE SULFATE
     Indication: ACUTE LYMPHOCYTIC LEUKAEMIA
     Dosage: 2 MG, 1X/DAY
     Route: 042
     Dates: start: 20171204, end: 20171204
  3. METHOTREXATE SODIUM. [Suspect]
     Active Substance: METHOTREXATE SODIUM
     Indication: ACUTE LYMPHOCYTIC LEUKAEMIA
     Dosage: 3291.4 MG, 1X/DAY
     Route: 042
     Dates: start: 20171204, end: 20171205
  4. DEXAMETHASONE. [Suspect]
     Active Substance: DEXAMETHASONE
     Indication: ACUTE LYMPHOCYTIC LEUKAEMIA
     Dosage: 6.6 MG, 2X/DAY (EVERY 12 HOURS)
     Route: 042
     Dates: start: 20171204, end: 20171208

REACTIONS (4)
  - Gastroenteritis norovirus [Recovered/Resolved]
  - Gastroenteritis salmonella [Recovered/Resolved]
  - Hepatitis [Recovered/Resolved]
  - Pancytopenia [Recovered/Resolved]

NARRATIVE: CASE EVENT DATE: 20171208
